FAERS Safety Report 13838644 (Version 4)
Quarter: 2017Q4

REPORT INFORMATION
  Report Type: Report from Study
  Country: BR (occurrence: BR)
  Receive Date: 20170807
  Receipt Date: 20171030
  Transmission Date: 20180320
  Serious: Yes (Other)
  Sender: FDA-Public Use
  Company Number: PHHY2017BR114101

PATIENT
  Sex: Female
  Weight: 59 kg

DRUGS (1)
  1. ACLASTA [Suspect]
     Active Substance: ZOLEDRONIC ACID
     Indication: PRODUCT USED FOR UNKNOWN INDICATION
     Dosage: 1 DF, Q12MO
     Route: 042

REACTIONS (12)
  - Feeling cold [Recovered/Resolved]
  - Influenza [Recovered/Resolved]
  - Abdominal discomfort [Recovered/Resolved]
  - Hypertension [Unknown]
  - Viral infection [Unknown]
  - Neck pain [Recovered/Resolved]
  - Pain [Recovered/Resolved]
  - Incorrect drug administration duration [Unknown]
  - Pyrexia [Recovered/Resolved]
  - Nasopharyngitis [Recovering/Resolving]
  - Pneumonia [Unknown]
  - Malaise [Recovered/Resolved]
